FAERS Safety Report 18768103 (Version 1)
Quarter: 2021Q1

REPORT INFORMATION
  Report Type: Spontaneous
  Country: US (occurrence: US)
  Receive Date: 20210120
  Receipt Date: 20210120
  Transmission Date: 20210419
  Serious: Yes (Hospitalization)
  Sender: FDA-Public Use
  Company Number: None

PATIENT
  Age: 74 Year
  Sex: Male
  Weight: 150 kg

DRUGS (1)
  1. ETHAMBUTOL (ETHAMBUTOL HCL 100MG TAB) [Suspect]
     Active Substance: ETHAMBUTOL HYDROCHLORIDE
     Indication: MYCOBACTERIUM AVIUM COMPLEX INFECTION
     Route: 048
     Dates: start: 20181218, end: 20200928

REACTIONS (5)
  - Dyschromatopsia [None]
  - Toxicity to various agents [None]
  - Therapy cessation [None]
  - Visual impairment [None]
  - COVID-19 [None]

NARRATIVE: CASE EVENT DATE: 20200928
